FAERS Safety Report 10472913 (Version 2)
Quarter: 2014Q3

REPORT INFORMATION
  Report Type: Spontaneous
  Country: US (occurrence: US)
  Receive Date: 20140924
  Receipt Date: 20140924
  Transmission Date: 20150326
  Serious: No
  Sender: FDA-Public Use
  Company Number: US-SANOFI-AVENTIS-2013SA049634

PATIENT
  Age: 34 Year
  Sex: Male

DRUGS (16)
  1. AUBAGIO [Suspect]
     Active Substance: TERIFLUNOMIDE
     Indication: MULTIPLE SCLEROSIS
     Route: 048
     Dates: start: 20130127
  2. PROPRANOLOL [Concomitant]
     Active Substance: PROPRANOLOL\PROPRANOLOL HYDROCHLORIDE
  3. MIRALAX [Concomitant]
     Active Substance: POLYETHYLENE GLYCOL 3350
  4. CYMBALTA [Concomitant]
     Active Substance: DULOXETINE HYDROCHLORIDE
  5. TEMAZEPAM. [Concomitant]
     Active Substance: TEMAZEPAM
  6. SUBOXONE [Concomitant]
     Active Substance: BUPRENORPHINE HYDROCHLORIDE\NALOXONE HYDROCHLORIDE
     Dosage: 8 MG-2 MG SL FILM
  7. SYNTHROID [Concomitant]
     Active Substance: LEVOTHYROXINE SODIUM
  8. SEROQUEL [Concomitant]
     Active Substance: QUETIAPINE FUMARATE
  9. ANDROGEL [Concomitant]
     Active Substance: TESTOSTERONE
  10. COUMADIN [Concomitant]
     Active Substance: WARFARIN SODIUM
  11. MULTIVITAMINS [Concomitant]
     Active Substance: VITAMINS
  12. PREVACID [Concomitant]
     Active Substance: LANSOPRAZOLE
  13. FISH OIL [Concomitant]
     Active Substance: FISH OIL
     Dosage: FORM: SOFTGEL
  14. COUMADIN [Concomitant]
     Active Substance: WARFARIN SODIUM
  15. DEPAKOTE ER [Concomitant]
     Active Substance: DIVALPROEX SODIUM
  16. VITAMIN D [Concomitant]
     Active Substance: CHOLECALCIFEROL
     Dosage: DOSE:2000 UNIT(S)

REACTIONS (4)
  - Burning sensation [Unknown]
  - Paraesthesia [Unknown]
  - Speech disorder [Unknown]
  - Nasal congestion [Unknown]
